FAERS Safety Report 25445833 (Version 1)
Quarter: 2025Q2

REPORT INFORMATION
  Report Type: Other
  Country: LB (occurrence: LB)
  Receive Date: 20250617
  Receipt Date: 20250617
  Transmission Date: 20250716
  Serious: Yes (Other)
  Sender: Hibrow Healthcare
  Company Number: LB-Hibrow Healthcare Private Ltd-2178865

PATIENT
  Age: 62 Year
  Sex: Male

DRUGS (1)
  1. BACLOFEN [Suspect]
     Active Substance: BACLOFEN
     Indication: Abdominal pain

REACTIONS (1)
  - Pancreatitis acute [Recovered/Resolved]
